FAERS Safety Report 13853800 (Version 2)
Quarter: 2017Q3

REPORT INFORMATION
  Report Type: Report from Study
  Country: US (occurrence: US)
  Receive Date: 20170809
  Receipt Date: 20170912
  Transmission Date: 20171127
  Serious: Yes (Death)
  Sender: FDA-Public Use
  Company Number: US-MALLINCKRODT-T201703225

PATIENT
  Age: 10 Day
  Sex: Male
  Weight: 1 kg

DRUGS (20)
  1. CUROSURF [Concomitant]
     Active Substance: PORACTANT ALFA
     Indication: PRODUCT USED FOR UNKNOWN INDICATION
     Dosage: 1.25 ML/KG ONCE
     Route: 039
     Dates: start: 20170711, end: 20170711
  2. DEXTROSE. [Concomitant]
     Active Substance: DEXTROSE
     Indication: PRODUCT USED FOR UNKNOWN INDICATION
     Dosage: 125 G, 1.5 ML/HR (50%)
     Route: 065
     Dates: start: 20170714, end: 20170715
  3. DEXTROSE. [Concomitant]
     Active Substance: DEXTROSE
     Dosage: 1.6 ML BOLUS FROM BAG (10% BOLUS 1.6 ML)
     Route: 065
     Dates: start: 20170713, end: 20170713
  4. LASIX [Concomitant]
     Active Substance: FUROSEMIDE
     Indication: PRODUCT USED FOR UNKNOWN INDICATION
     Dosage: 0.8 MG, 1MG/KG ONCE
     Route: 065
     Dates: start: 20170714, end: 20170714
  5. SODIUM CHLORIDE. [Concomitant]
     Active Substance: SODIUM CHLORIDE
     Indication: PRODUCT USED FOR UNKNOWN INDICATION
     Dosage: 0.9%, 10 ML/KG ONCE
     Route: 065
     Dates: start: 20170717, end: 20170717
  6. CUROSURF [Concomitant]
     Active Substance: PORACTANT ALFA
     Dosage: 2.5 ML/KG ONCE
     Route: 037
     Dates: start: 20170710, end: 20170710
  7. DEXTROSE. [Concomitant]
     Active Substance: DEXTROSE
     Dosage: 2 ML/KG BOLUS FROM BAG (10% BOLUS 1.56ML)
     Route: 065
     Dates: start: 20170713, end: 20170713
  8. CALCIUM GLUCONATE. [Concomitant]
     Active Substance: CALCIUM GLUCONATE
     Indication: PRODUCT USED FOR UNKNOWN INDICATION
     Dosage: 100MG/KG/ DOSE ONCE (78 MG IN DEXTROSE)
     Route: 065
     Dates: start: 20170716, end: 20170716
  9. VIRAMUNE [Concomitant]
     Active Substance: NEVIRAPINE
     Indication: PRODUCT USED FOR UNKNOWN INDICATION
     Dosage: 8 MG ONCE
     Route: 065
     Dates: start: 20170710, end: 20170710
  10. VANCOCIN [Concomitant]
     Active Substance: VANCOMYCIN HYDROCHLORIDE
     Indication: PRODUCT USED FOR UNKNOWN INDICATION
     Dosage: 10 MG/KG/DOSE
     Route: 065
     Dates: start: 20170717, end: 20170717
  11. CALCIUM GLUCONATE. [Concomitant]
     Active Substance: CALCIUM GLUCONATE
     Dosage: 0.3ML/ HR CONTINOUS
     Route: 065
     Dates: start: 20170716, end: 20170716
  12. SODIUM BICARBONATE. [Concomitant]
     Active Substance: SODIUM BICARBONATE
     Indication: PRODUCT USED FOR UNKNOWN INDICATION
     Dosage: 2 MEQ/KG/ ONCE (1.55 MEQ)
     Route: 065
     Dates: start: 20170710, end: 20170710
  13. AMBISOM [Concomitant]
     Active Substance: AMPHOTERICIN B
     Indication: PRODUCT USED FOR UNKNOWN INDICATION
     Dosage: 3 MG/KG/DOSE
     Route: 065
     Dates: start: 20170717, end: 20170717
  14. SODIUM CHLORIDE. [Concomitant]
     Active Substance: SODIUM CHLORIDE
     Dosage: 0.9%, 10 ML/KG BOLUS FROM BAG
     Route: 065
     Dates: start: 20170717, end: 20170717
  15. ADRENALINE [Concomitant]
     Active Substance: EPINEPHRINE
     Indication: PRODUCT USED FOR UNKNOWN INDICATION
     Dosage: 0.7 ML ONCE
     Route: 065
     Dates: start: 20170710, end: 20170710
  16. VITAMIN K [Concomitant]
     Active Substance: PHYTONADIONE
     Indication: PRODUCT USED FOR UNKNOWN INDICATION
     Dosage: 1 MG, ONCE
     Route: 065
     Dates: start: 20170711, end: 20170711
  17. NITRIC OXIDE. [Suspect]
     Active Substance: NITRIC OXIDE
     Indication: PERSISTENT FOETAL CIRCULATION
     Dosage: 10 PPM, CONTINUOUS
     Dates: start: 20170710, end: 20170718
  18. INTROPIN [Concomitant]
     Active Substance: DOPAMINE HYDROCHLORIDE
     Indication: PRODUCT USED FOR UNKNOWN INDICATION
     Dosage: 1600 MCG/ UNKNOWN
     Route: 065
     Dates: start: 20170710, end: 20170710
  19. VIRAMUNE [Concomitant]
     Active Substance: NEVIRAPINE
     Dosage: 8 MG ONCE
     Route: 065
     Dates: start: 20170714, end: 20170714
  20. MORPHINE [Concomitant]
     Active Substance: MORPHINE
     Indication: PRODUCT USED FOR UNKNOWN INDICATION
     Dosage: 0.25 MG/5 ML. 0.2 MG/KG ONCE
     Route: 042
     Dates: start: 20170718, end: 20170718

REACTIONS (1)
  - Multiple organ dysfunction syndrome [Fatal]

NARRATIVE: CASE EVENT DATE: 20170718
